FAERS Safety Report 9306708 (Version 1)
Quarter: 2013Q2

REPORT INFORMATION
  Report Type: Spontaneous
  Country: US (occurrence: US)
  Receive Date: 20130523
  Receipt Date: 20130523
  Transmission Date: 20140414
  Serious: No
  Sender: FDA-Public Use
  Company Number: US-ALEXION-A201300942

PATIENT
  Age: 5 Year
  Sex: 0
  Weight: 16.6 kg

DRUGS (1)
  1. SOLIRIS 300MG [Suspect]
     Indication: PRODUCT USED FOR UNKNOWN INDICATION
     Dosage: 300 MG, Q2W
     Route: 042
     Dates: start: 201212

REACTIONS (2)
  - Renal pain [Unknown]
  - Headache [Unknown]
